FAERS Safety Report 24648296 (Version 2)
Quarter: 2025Q1

REPORT INFORMATION
  Report Type: Spontaneous
  Country: JP (occurrence: JP)
  Receive Date: 20241121
  Receipt Date: 20250124
  Transmission Date: 20250408
  Serious: Yes (Other)
  Sender: SANOFI AVENTIS
  Company Number: JP-SA-2024SA339256

PATIENT
  Sex: Female

DRUGS (4)
  1. OXALIPLATIN [Suspect]
     Active Substance: OXALIPLATIN
     Indication: Colon cancer
     Route: 041
  2. LEVOLEUCOVORIN CALCIUM [Concomitant]
     Active Substance: LEVOLEUCOVORIN CALCIUM
  3. FLUOROURACIL [Concomitant]
     Active Substance: FLUOROURACIL
  4. BEVACIZUMAB [Concomitant]
     Active Substance: BEVACIZUMAB

REACTIONS (2)
  - Splenomegaly [Not Recovered/Not Resolved]
  - Thrombocytopenia [Not Recovered/Not Resolved]
